FAERS Safety Report 18314952 (Version 1)
Quarter: 2020Q3

REPORT INFORMATION
  Report Type: Report from Study
  Country: FR (occurrence: FR)
  Receive Date: 20200925
  Receipt Date: 20200925
  Transmission Date: 20201103
  Serious: Yes (Other)
  Sender: FDA-Public Use
  Company Number: FR-INCYTE CORPORATION-2019IN002353

PATIENT

DRUGS (22)
  1. JAKAVI [Suspect]
     Active Substance: RUXOLITINIB
     Dosage: 30 OT
     Route: 048
     Dates: start: 20191214, end: 20200524
  2. INNOHEP [Concomitant]
     Active Substance: TINZAPARIN SODIUM
     Indication: THROMBOSIS PROPHYLAXIS
     Dosage: 0.8 OT
     Route: 065
     Dates: start: 20170126, end: 20191213
  3. SALBUTAMOL [Concomitant]
     Active Substance: ALBUTEROL
     Indication: PULMONARY SEPSIS
     Dosage: UNK
     Route: 065
     Dates: start: 20200520
  4. ROCEPHINE [Concomitant]
     Active Substance: CEFTRIAXONE SODIUM
     Indication: CHOLELITHIASIS
     Dosage: UNK
     Route: 065
     Dates: start: 20200125
  5. HEPARIN [Concomitant]
     Active Substance: HEPARIN SODIUM
     Indication: THROMBOSIS PROPHYLAXIS
     Dosage: UNK
     Route: 065
     Dates: start: 20200520
  6. OXYGEN. [Concomitant]
     Active Substance: OXYGEN
     Indication: PULMONARY SEPSIS
     Dosage: UNK
     Route: 065
     Dates: start: 20200522
  7. AMIKACINE [AMIKACIN SULFATE] [Concomitant]
     Active Substance: AMIKACIN SULFATE
     Indication: PULMONARY SEPSIS
     Dosage: UNK
     Route: 065
     Dates: start: 20200522
  8. BACTRIM [Concomitant]
     Active Substance: SULFAMETHOXAZOLE\TRIMETHOPRIM
     Indication: INFECTION PROPHYLAXIS
     Dosage: 1 OT
     Route: 065
     Dates: start: 20200529
  9. HYDROXYUREA. [Concomitant]
     Active Substance: HYDROXYUREA
     Indication: CHRONIC MYELOMONOCYTIC LEUKAEMIA
     Dosage: 500 OT
     Route: 065
     Dates: start: 2009, end: 20181107
  10. FLAGYL [Concomitant]
     Active Substance: METRONIDAZOLE\METRONIDAZOLE HYDROCHLORIDE
     Indication: CHOLELITHIASIS
     Dosage: UNK
     Route: 065
     Dates: start: 20200125, end: 20200204
  11. ROVAMYCINE [Concomitant]
     Active Substance: SPIRAMYCIN
     Indication: PULMONARY SEPSIS
     Dosage: UNK
     Route: 065
     Dates: start: 20200520
  12. ATROVENT [Concomitant]
     Active Substance: IPRATROPIUM BROMIDE
     Indication: PULMONARY SEPSIS
     Dosage: UNK
     Route: 065
     Dates: start: 20200520
  13. FOLINORAL [Concomitant]
     Active Substance: LEUCOVORIN CALCIUM
     Indication: ANAEMIA PROPHYLAXIS
     Dosage: 25 OT
     Route: 065
     Dates: start: 20200529
  14. FLAGYL [Concomitant]
     Active Substance: METRONIDAZOLE\METRONIDAZOLE HYDROCHLORIDE
     Indication: PULMONARY SEPSIS
     Dosage: UNK
     Route: 065
     Dates: start: 20200520
  15. PARACETAMOL [Concomitant]
     Active Substance: ACETAMINOPHEN
     Indication: PULMONARY SEPSIS
     Dosage: UNK
     Route: 065
     Dates: start: 20200520
  16. ZELITREX [Concomitant]
     Active Substance: VALACYCLOVIR HYDROCHLORIDE
     Indication: INFECTION PROPHYLAXIS
     Dosage: 500 OT
     Route: 065
     Dates: start: 20200529
  17. LANZOR [Concomitant]
     Active Substance: LANSOPRAZOLE
     Indication: PROPHYLAXIS
     Dosage: UNK
     Route: 065
     Dates: start: 20200520
  18. JAKAVI [Suspect]
     Active Substance: RUXOLITINIB
     Indication: CHRONIC MYELOMONOCYTIC LEUKAEMIA
     Dosage: 20 OT
     Route: 048
     Dates: start: 20180914, end: 20191213
  19. JAKAVI [Suspect]
     Active Substance: RUXOLITINIB
     Dosage: 20 OT
     Route: 048
     Dates: start: 20200525
  20. LEVOTHYROX [Concomitant]
     Active Substance: LEVOTHYROXINE
     Indication: HYPOTHYROIDISM
     Dosage: 200 OT
     Route: 065
     Dates: start: 201702
  21. CEFTRIAXONE. [Concomitant]
     Active Substance: CEFTRIAXONE
     Indication: PULMONARY SEPSIS
     Dosage: UNK
     Route: 065
     Dates: start: 20200520
  22. TAZOCILLINE [Concomitant]
     Active Substance: PIPERACILLIN SODIUM\TAZOBACTAM SODIUM
     Indication: PULMONARY SEPSIS
     Dosage: UNK
     Route: 065
     Dates: start: 20200520

REACTIONS (16)
  - Renal failure [Recovered/Resolved]
  - Asthenia [Not Recovered/Not Resolved]
  - Disseminated intravascular coagulation [Recovered/Resolved]
  - Gout [Recovered/Resolved]
  - Gout [Recovered/Resolved]
  - Product use in unapproved indication [Unknown]
  - Oral fungal infection [Recovered/Resolved]
  - Diarrhoea [Not Recovered/Not Resolved]
  - Gastrointestinal infection [Recovered/Resolved]
  - Epistaxis [Recovered/Resolved]
  - Chest pain [Recovered/Resolved]
  - Thrombocytopenia [Not Recovered/Not Resolved]
  - Anaemia [Recovered/Resolved]
  - Anaemia [Recovered/Resolved]
  - Paronychia [Not Recovered/Not Resolved]
  - Thrombocytopenia [Recovered/Resolved]

NARRATIVE: CASE EVENT DATE: 20180914
